FAERS Safety Report 10678659 (Version 1)
Quarter: 2014Q4

REPORT INFORMATION
  Report Type: Report from Study
  Country: US (occurrence: None)
  Receive Date: 20141223
  Receipt Date: 20141223
  Transmission Date: 20150529
  Serious: Yes (Other)
  Sender: FDA-Public Use
  Company Number: HRA-CDB20140236

PATIENT
  Age: 32 Year
  Sex: Female
  Weight: 72.7 kg

DRUGS (1)
  1. ELLA [Suspect]
     Active Substance: ULIPRISTAL ACETATE
     Indication: POST COITAL CONTRACEPTION
     Dosage: 1 DOSAGE FORMS (1 DOSAGE FORMS, 1 IN 1 D)
     Dates: start: 20141021, end: 20141021

REACTIONS (3)
  - Exposure during pregnancy [None]
  - Pregnancy after post coital contraception [None]
  - Abortion induced [None]

NARRATIVE: CASE EVENT DATE: 2014
